FAERS Safety Report 16536598 (Version 3)
Quarter: 2019Q4

REPORT INFORMATION
  Report Type: Spontaneous
  Country: TH (occurrence: TH)
  Receive Date: 20190706
  Receipt Date: 20191029
  Transmission Date: 20200122
  Serious: Yes (Other)
  Sender: FDA-Public Use
  Company Number: TH-009507513-1906THA006124

PATIENT
  Age: 29 Year
  Sex: Female
  Weight: 54.5 kg

DRUGS (2)
  1. RIFAMPIN. [Interacting]
     Active Substance: RIFAMPIN
     Indication: TUBERCULOUS PLEURISY
     Dosage: 600 MG/D
     Route: 048
     Dates: start: 2018, end: 201905
  2. IMPLANON NXT [Suspect]
     Active Substance: ETONOGESTREL
     Indication: CONTRACEPTION
     Dosage: 1 IMPLANT
     Route: 059
     Dates: start: 20170222

REACTIONS (7)
  - Pregnancy with implant contraceptive [Recovered/Resolved]
  - Drug interaction [Unknown]
  - Premature delivery [Unknown]
  - Metrorrhagia [Recovered/Resolved]
  - Depression [Not Recovered/Not Resolved]
  - Unintended pregnancy [Recovered/Resolved]
  - Amenorrhoea [Not Recovered/Not Resolved]

NARRATIVE: CASE EVENT DATE: 2017
